FAERS Safety Report 9521519 (Version 1)
Quarter: 2013Q1

REPORT INFORMATION
  Report Type: Spontaneous
  Country: US (occurrence: None)
  Receive Date: 20130305
  Receipt Date: 20130305
  Transmission Date: 20140127
  Serious: Yes (Other)
  Sender: FDA-Public Use
  Company Number: 163-21880-12O80172

PATIENT
  Age: 56 Year
  Sex: Female

DRUGS (5)
  1. REVLIMID (LENALIDOMIDE) (CAPSULES) [Suspect]
     Indication: PLASMA CELL MYELOMA
     Route: 048
     Dates: start: 20120627
  2. PROTONIX (UNKNOWN) [Concomitant]
  3. AMBIEN (ZOLPIDEM TARTRATE) (UNKNOWN) [Concomitant]
  4. ONDANSETRON (ONDANSETRON) (UNKNOWN) [Concomitant]
  5. SPIRONOLACTONE (SPIRONOLACTONE) (UNKNOWN) [Concomitant]

REACTIONS (4)
  - Local swelling [None]
  - Urinary tract infection [None]
  - Diarrhoea [None]
  - Fungal infection [None]
